FAERS Safety Report 13813341 (Version 1)
Quarter: 2017Q3

REPORT INFORMATION
  Report Type: Spontaneous
  Country: US (occurrence: US)
  Receive Date: 20170729
  Receipt Date: 20170729
  Transmission Date: 20171127
  Serious: No
  Sender: FDA-Public Use
  Company Number: US-SHIRE-US201715386

PATIENT

DRUGS (1)
  1. XIIDRA [Suspect]
     Active Substance: LIFITEGRAST
     Indication: PRODUCT USED FOR UNKNOWN INDICATION
     Dosage: 50 MG/1 ML
     Route: 047

REACTIONS (4)
  - Product use complaint [Unknown]
  - Instillation site pain [Unknown]
  - Instillation site erythema [Unknown]
  - Instillation site swelling [Unknown]
